FAERS Safety Report 5260804-2 (Version None)
Quarter: 2007Q1

REPORT INFORMATION
  Report Type: 
  Country: None (occurrence: None)
  Receive Date: 20070309
  Receipt Date: 20070223
  Transmission Date: 20070707
  Serious: No
  Sender: FDA-Public Use
  Company Number: US-ELI_LILLY_AND_COMPANY-US200702004946

PATIENT
  Age: 56 Year
  Sex: Female

DRUGS (5)
  1. CYMBALTA [Suspect]
     Indication: ARTHRALGIA
     Dosage: 20 MG, UNK
  2. CYMBALTA [Suspect]
     Dosage: 30 MG, UNK
     Dates: start: 20070202
  3. CYMBALTA [Suspect]
     Dosage: 60 MG, UNK
     Dates: start: 20070201
  4. CYMBALTA [Suspect]
     Dosage: 60 MG, UNK
     Dates: start: 20070126
  5. DEXAMETHASONE [Concomitant]
     Dates: start: 20070221, end: 20070221

REACTIONS (2)
  - CHROMATURIA [None]
  - FATIGUE [None]
